FAERS Safety Report 5340107-8 (Version None)
Quarter: 2007Q2

REPORT INFORMATION
  Report Type: 
  Country: None (occurrence: None)
  Receive Date: 20070525
  Receipt Date: 20070525
  Transmission Date: 20071010
  Serious: Yes (Hospitalization)
  Sender: FDA-Public Use
  Company Number: None

PATIENT

DRUGS (7)
  1. WARFARIN SODIUM [Suspect]
     Indication: ANTICOAGULANT THERAPY
     Dosage: DAILY PO
     Route: 048
  2. DECADRON [Concomitant]
  3. MICRO-K [Concomitant]
  4. LASIX [Concomitant]
  5. PROTONIX [Concomitant]
  6. LANOXIN [Concomitant]
  7. CAPTOPRIL [Concomitant]

REACTIONS (3)
  - GASTROINTESTINAL HAEMORRHAGE [None]
  - INTERNATIONAL NORMALISED RATIO INCREASED [None]
  - SHOCK [None]
